FAERS Safety Report 6046788-8 (Version None)
Quarter: 2009Q1

REPORT INFORMATION
  Report Type: 
  Country: None (occurrence: None)
  Receive Date: 20090122
  Receipt Date: 20090116
  Transmission Date: 20090719
  Serious: Yes (Hospitalization)
  Sender: FDA-Public Use
  Company Number: A0714101A

PATIENT
  Age: 47 Year
  Sex: Female

DRUGS (9)
  1. AVANDIA [Suspect]
     Dosage: 2MG PER DAY
     Route: 048
     Dates: start: 20020101, end: 20060101
  2. LANTUS [Concomitant]
     Dates: start: 20030901
  3. MIDRIN [Concomitant]
  4. LISINOPRIL [Concomitant]
  5. SULAR [Concomitant]
  6. MULTI-VITAMIN [Concomitant]
  7. ALBUTEROL [Concomitant]
  8. ADVAIR DISKUS 100/50 [Concomitant]
  9. FLONASE [Concomitant]

REACTIONS (3)
  - ANGINA UNSTABLE [None]
  - MYOCARDIAL INFARCTION [None]
  - MYOCARDIAL ISCHAEMIA [None]
